FAERS Safety Report 6341474-9 (Version None)
Quarter: 2009Q3

REPORT INFORMATION
  Report Type: 
  Country: None (occurrence: None)
  Receive Date: 20090904
  Receipt Date: 20090823
  Transmission Date: 20100115
  Serious: Yes (Other)
  Sender: FDA-Public Use
  Company Number: ZA-PFIZER INC-2009261297

PATIENT
  Age: 11 Year

DRUGS (3)
  1. LYRICA [Suspect]
     Indication: NEURALGIA
     Dosage: 25 MG, 1X/DAY
     Route: 048
  2. LYRICA [Suspect]
     Indication: SINUSITIS
     Dosage: 50 MG, 1X/DAY
     Route: 048
  3. LYRICA [Suspect]
     Indication: PHARYNGITIS
     Dosage: 75 MG, 2X/DAY
     Route: 048

REACTIONS (27)
  - AGITATION [None]
  - ANGIOEDEMA [None]
  - ARTHRALGIA [None]
  - ATAXIA [None]
  - BRONCHITIS [None]
  - COGNITIVE DISORDER [None]
  - COLITIS [None]
  - DEPRESSION [None]
  - DYSARTHRIA [None]
  - DYSGEUSIA [None]
  - DYSKINESIA [None]
  - HYPERAESTHESIA [None]
  - IMMUNE SYSTEM DISORDER [None]
  - MALABSORPTION [None]
  - MUSCULAR WEAKNESS [None]
  - MYALGIA [None]
  - NAUSEA [None]
  - NUCHAL RIGIDITY [None]
  - OLIGURIA [None]
  - PAIN [None]
  - PARKINSONISM [None]
  - PERSONALITY CHANGE [None]
  - PHARYNGITIS [None]
  - POLYCYTHAEMIA [None]
  - SLEEP DISORDER [None]
  - SUICIDAL IDEATION [None]
  - VISUAL ACUITY REDUCED [None]
